FAERS Safety Report 9734808 (Version 2)
Quarter: 2014Q2

REPORT INFORMATION
  Report Type: Report from Study
  Country: CA (occurrence: CA)
  Receive Date: 20131206
  Receipt Date: 20140522
  Transmission Date: 20141212
  Serious: Yes (Hospitalization, Other)
  Sender: FDA-Public Use
  Company Number: CA-JNJFOC-20131118628

PATIENT
  Age: 51 Year
  Sex: Female
  Weight: 89 kg

DRUGS (3)
  1. REMICADE [Suspect]
     Indication: CROHN^S DISEASE
     Route: 042
     Dates: start: 20140425
  2. REMICADE [Suspect]
     Indication: CROHN^S DISEASE
     Dosage: INFUSION NUMBER 89
     Route: 042
  3. REMICADE [Suspect]
     Indication: CROHN^S DISEASE
     Route: 042
     Dates: start: 20140321

REACTIONS (3)
  - Intestinal prolapse [Recovered/Resolved]
  - Incision site complication [Recovered/Resolved]
  - Ovarian cyst [Unknown]
